FAERS Safety Report 6262071-X (Version None)
Quarter: 2009Q3

REPORT INFORMATION
  Report Type: 
  Country: None (occurrence: None)
  Receive Date: 20090707
  Receipt Date: 20090707
  Transmission Date: 20100115
  Serious: No
  Sender: FDA-Public Use
  Company Number: None

PATIENT
  Sex: Female
  Weight: 104.7809 kg

DRUGS (1)
  1. DIPRIVAN [Suspect]
     Indication: PERIPHERAL NERVE DESTRUCTION

REACTIONS (4)
  - GRIP STRENGTH DECREASED [None]
  - HYPOTENSION [None]
  - SOMNOLENCE [None]
  - TREMOR [None]
